FAERS Safety Report 9098428 (Version 1)
Quarter: 2013Q1

REPORT INFORMATION
  Report Type: Spontaneous
  Country: BR (occurrence: BR)
  Receive Date: 20130213
  Receipt Date: 20130213
  Transmission Date: 20140127
  Serious: Yes (Other)
  Sender: FDA-Public Use
  Company Number: PHHY2012BR073734

PATIENT
  Sex: Female
  Weight: 60 kg

DRUGS (1)
  1. METHYSERGIDE MALEATE [Suspect]
     Indication: MIGRAINE
     Dosage: 2 DF, DAILY
     Route: 048

REACTIONS (2)
  - Haematemesis [Recovered/Resolved]
  - Migraine [Recovering/Resolving]
